FAERS Safety Report 23654108 (Version 1)
Quarter: 2024Q1

REPORT INFORMATION
  Report Type: Report from Study
  Country: US (occurrence: US)
  Receive Date: 20240320
  Receipt Date: 20240320
  Transmission Date: 20240410
  Serious: Yes (Hospitalization, Other)
  Sender: FDA-Public Use
  Company Number: US-EXELIXIS-CABO-24072505

PATIENT
  Sex: Male

DRUGS (9)
  1. CABOMETYX [Suspect]
     Active Substance: CABOZANTINIB S-MALATE
     Indication: Renal cancer
     Dosage: 40 MG, QD
     Route: 048
     Dates: start: 20231214
  2. CABOMETYX [Suspect]
     Active Substance: CABOZANTINIB S-MALATE
     Dosage: 60 MG QD (3 TABLETS OF 20 MG ONCE DAILY)
     Route: 048
     Dates: start: 202401
  3. MOTRIN IB [Concomitant]
     Active Substance: IBUPROFEN
     Dosage: UNK
  4. ROSUVASTATIN [Concomitant]
     Active Substance: ROSUVASTATIN
     Dosage: UNK
  5. LORATADINE [Concomitant]
     Active Substance: LORATADINE
     Dosage: UNK
  6. METFORMIN HYDROCHLORIDE [Concomitant]
     Active Substance: METFORMIN HYDROCHLORIDE
     Dosage: UNK
  7. ONDANSETRON [Concomitant]
     Active Substance: ONDANSETRON
     Dosage: UNK
  8. PREGABALIN [Concomitant]
     Active Substance: PREGABALIN
     Dosage: UNK
  9. GAS RELIEF [Concomitant]
     Active Substance: DIMETHICONE
     Dosage: UNK

REACTIONS (19)
  - Adverse drug reaction [Unknown]
  - Rectal haemorrhage [Recovered/Resolved]
  - Dysuria [Recovered/Resolved]
  - Rectal discharge [Recovered/Resolved]
  - Bowel movement irregularity [Recovered/Resolved]
  - Blood pressure increased [Not Recovered/Not Resolved]
  - Taste disorder [Recovered/Resolved]
  - Nausea [Not Recovered/Not Resolved]
  - Stomatitis [Recovered/Resolved]
  - Constipation [Recovered/Resolved]
  - Muscle spasms [Recovered/Resolved]
  - Fatigue [Recovered/Resolved]
  - Asthenia [Recovered/Resolved]
  - Rectal spasm [Unknown]
  - Flatulence [Recovered/Resolved]
  - Dehydration [Recovered/Resolved]
  - Depression [Recovered/Resolved]
  - Irritability [Recovered/Resolved]
  - Proctalgia [Recovered/Resolved]
